FAERS Safety Report 16350818 (Version 2)
Quarter: 2019Q4

REPORT INFORMATION
  Report Type: Spontaneous
  Country: FR (occurrence: FR)
  Receive Date: 20190524
  Receipt Date: 20191031
  Transmission Date: 20200122
  Serious: Yes (Hospitalization)
  Sender: FDA-Public Use
  Company Number: FR-SUN PHARMACEUTICAL INDUSTRIES LTD-2019RR-208561

PATIENT
  Age: 72 Year
  Sex: Male
  Weight: 106 kg

DRUGS (9)
  1. LANSOPRAZOLE. [Suspect]
     Active Substance: LANSOPRAZOLE
     Indication: PROPHYLAXIS
     Dosage: 15 MILLIGRAM, DAILY
     Route: 048
     Dates: start: 20190320, end: 20190417
  2. KARDEGIC [Concomitant]
     Active Substance: ASPIRIN DL-LYSINE
     Indication: PROPHYLAXIS
     Dosage: 1 DOSAGE FORM, DAILY
     Route: 048
  3. DEXAMBUTOL [Suspect]
     Active Substance: ETHAMBUTOL HYDROCHLORIDE
     Indication: DISSEMINATED BACILLUS CALMETTE-GUERIN INFECTION
     Dosage: 1500 MILLIGRAM, DAILY
     Route: 048
     Dates: start: 20190313, end: 20190417
  4. RIFINAH 300 MG/150 MG, COMPRIME ENROBE [Suspect]
     Active Substance: ISONIAZID\RIFAMPIN
     Indication: DISSEMINATED BACILLUS CALMETTE-GUERIN INFECTION
     Dosage: 3 DOSAGE FORM, DAILY
     Route: 048
     Dates: start: 20190313, end: 20190417
  5. BECILAN 250 MG, COMPRIME SECABLE [Suspect]
     Active Substance: PYRIDOXINE
     Indication: VITAMIN SUPPLEMENTATION
     Dosage: 1 DOSAGE FORM, DAILY
     Route: 048
     Dates: start: 20190315, end: 20190417
  6. SPECIAFOLDINE 5 MG, COMPRIME [Concomitant]
     Active Substance: FOLIC ACID
     Indication: VITAMIN SUPPLEMENTATION
     Dosage: 1 DOSAGE FORM, DAILY
     Route: 048
     Dates: start: 20190310
  7. TELMISARTAN. [Concomitant]
     Active Substance: TELMISARTAN
     Indication: HYPERTENSION
     Dosage: 80 MILLIGRAM, DAILY
     Route: 048
  8. CORTANCYL [Suspect]
     Active Substance: PREDNISONE
     Indication: DISSEMINATED BACILLUS CALMETTE-GUERIN INFECTION
     Dosage: 100 MILLIGRAM, DAILY
     Route: 048
     Dates: start: 20190320, end: 20190417
  9. ATORVASTATINE [Concomitant]
     Active Substance: ATORVASTATIN
     Indication: PROPHYLAXIS
     Dosage: 40 MILLIGRAM, DAILY
     Route: 048

REACTIONS (1)
  - Agranulocytosis [Recovered/Resolved]

NARRATIVE: CASE EVENT DATE: 20190417
